FAERS Safety Report 4412842-7 (Version None)
Quarter: 2004Q3

REPORT INFORMATION
  Report Type: 
  Country: None (occurrence: None)
  Receive Date: 20040802
  Receipt Date: 20040727
  Transmission Date: 20050211
  Serious: Yes (Other)
  Sender: FDA-Public Use
  Company Number: US-BRISTOL-MYERS SQUIBB COMPANY-12652756

PATIENT
  Age: 7 Decade
  Sex: Male

DRUGS (4)
  1. ERBITUX [Suspect]
     Indication: COLON CANCER
     Dosage: 1ST INFUSION, LOADING DOSE. INFUSION SLOWED THEN D/C AFTER 15 MINS.
     Route: 042
     Dates: start: 20040713, end: 20040713
  2. BENADRYL [Concomitant]
     Indication: PREMEDICATION
     Route: 042
     Dates: start: 20040713, end: 20040713
  3. DECADRON [Concomitant]
     Indication: PREMEDICATION
     Route: 042
     Dates: start: 20040713, end: 20040713
  4. ANZEMET [Concomitant]
     Indication: PREMEDICATION
     Route: 042
     Dates: start: 20040713, end: 20040713

REACTIONS (8)
  - ABDOMINAL PAIN [None]
  - DIARRHOEA [None]
  - ERYTHEMA [None]
  - HYPOTENSION [None]
  - NAUSEA [None]
  - PRURITUS [None]
  - PULSE PRESSURE DECREASED [None]
  - RASH GENERALISED [None]
